FAERS Safety Report 14372570 (Version 1)
Quarter: 2018Q1

REPORT INFORMATION
  Report Type: Spontaneous
  Country: US (occurrence: US)
  Receive Date: 20180110
  Receipt Date: 20180110
  Transmission Date: 20180509
  Serious: No
  Sender: FDA-Public Use
  Company Number: US-GLAXOSMITHKLINE-US2018001413

PATIENT
  Age: 45 Year
  Sex: Female
  Weight: 93 kg

DRUGS (1)
  1. EQUATE NICOTINE [Suspect]
     Active Substance: NICOTINE
     Indication: PRODUCT USED FOR UNKNOWN INDICATION
     Dosage: 21 MG, QD
     Dates: start: 20171230, end: 20180102

REACTIONS (3)
  - Skin reaction [Unknown]
  - Application site pruritus [Unknown]
  - Application site pain [Unknown]

NARRATIVE: CASE EVENT DATE: 20180101
